FAERS Safety Report 6700910-6 (Version None)
Quarter: 2010Q2

REPORT INFORMATION
  Report Type: 
  Country: None (occurrence: None)
  Receive Date: 20100428
  Receipt Date: 20100421
  Transmission Date: 20101027
  Serious: No
  Sender: FDA-Public Use
  Company Number: IT-ASTRAZENECA-2010SE08574

PATIENT
  Age: 20532 Day
  Sex: Male

DRUGS (11)
  1. PROVISACOR [Suspect]
     Indication: ACUTE MYOCARDIAL INFARCTION
     Route: 048
     Dates: start: 19990101, end: 20090809
  2. ENALAPRIL MALEATE [Suspect]
     Indication: ACUTE MYOCARDIAL INFARCTION
     Route: 048
     Dates: start: 19990101, end: 20090809
  3. AMLODIPINE [Suspect]
     Indication: ACUTE MYOCARDIAL INFARCTION
     Route: 048
     Dates: start: 19990101, end: 20090809
  4. KARVEA [Suspect]
     Indication: ACUTE MYOCARDIAL INFARCTION
     Route: 048
  5. ATENOLOL [Concomitant]
     Indication: ACUTE MYOCARDIAL INFARCTION
     Route: 048
  6. ASPIRIN [Concomitant]
     Route: 048
  7. TRINIPLAS [Concomitant]
     Route: 062
  8. ESKIM [Concomitant]
     Route: 048
  9. KCL RETARD [Concomitant]
     Route: 048
     Dates: start: 19990101, end: 20090809
  10. INSULIN [Concomitant]
     Route: 065
  11. METFORMIN [Concomitant]
     Route: 065

REACTIONS (2)
  - HYPERGLYCAEMIA [None]
  - HYPOTENSION [None]
